FAERS Safety Report 5013903-4 (Version None)
Quarter: 2006Q2

REPORT INFORMATION
  Report Type: 
  Country: None (occurrence: None)
  Receive Date: 20060525
  Receipt Date: 20060508
  Transmission Date: 20061013
  Serious: Yes (Death, Hospitalization)
  Sender: FDA-Public Use
  Company Number: GB200603006295

PATIENT
  Age: 64 Year
  Sex: Female

DRUGS (7)
  1. GEMZAR [Suspect]
     Indication: PANCREATIC CARCINOMA
     Dosage: 1000 MG/M2
  2. OXYCONTIN [Concomitant]
  3. OXYNORM (OXYCODONE HYDROCHLORIDE) [Concomitant]
  4. ENOXAPARIN SODIUM [Concomitant]
  5. PREGABALIN [Concomitant]
  6. VISCOTEARS (CARBOMER) [Concomitant]
  7. CARBOMER [Concomitant]

REACTIONS (7)
  - CRYPTOGENIC ORGANIZING PNEUMONIA [None]
  - GENERAL PHYSICAL HEALTH DETERIORATION [None]
  - LETHARGY [None]
  - MALIGNANT NEOPLASM PROGRESSION [None]
  - METASTASES TO LIVER [None]
  - PANCREATIC CARCINOMA [None]
  - SOMNOLENCE [None]
